FAERS Safety Report 24249407 (Version 1)
Quarter: 2024Q3

REPORT INFORMATION
  Report Type: Spontaneous
  Country: US (occurrence: US)
  Receive Date: 20240826
  Receipt Date: 20240826
  Transmission Date: 20241016
  Serious: No
  Sender: SANOFI AVENTIS
  Company Number: US-SA-2024SA247619

PATIENT
  Age: 51 Year
  Sex: Female

DRUGS (2)
  1. KEVZARA [Suspect]
     Active Substance: SARILUMAB
     Indication: Rheumatoid arthritis
     Dosage: 200 MG, QOW
     Route: 058
     Dates: start: 202407
  2. RINVOQ [Suspect]
     Active Substance: UPADACITINIB
     Dosage: UNK

REACTIONS (3)
  - Pruritus [Recovered/Resolved]
  - Injection site pruritus [Unknown]
  - Herpes zoster [Unknown]

NARRATIVE: CASE EVENT DATE: 20240101
